FAERS Safety Report 21764609 (Version 2)
Quarter: 2022Q4

REPORT INFORMATION
  Report Type: Report from Study
  Country: KR (occurrence: None)
  Receive Date: 20221222
  Receipt Date: 20221226
  Transmission Date: 20230112
  Serious: Yes (Hospitalization)
  Sender: FDA-Public Use
  Company Number: KR-ROCHE-3247482

PATIENT
  Age: 76 Year
  Sex: Male
  Weight: 77.2 kg

DRUGS (12)
  1. COBIMETINIB [Suspect]
     Active Substance: COBIMETINIB
     Indication: Colorectal cancer
     Route: 048
     Dates: start: 20210503, end: 20221205
  2. CETUXIMAB [Suspect]
     Active Substance: CETUXIMAB
     Indication: Colorectal cancer
     Route: 042
     Dates: start: 20210503, end: 20221205
  3. CLEOCIN-T [Concomitant]
     Indication: Folliculitis
     Route: 061
     Dates: start: 20220418
  4. REBAMIPIDE [Concomitant]
     Active Substance: REBAMIPIDE
     Indication: Gastritis
     Route: 048
     Dates: start: 20221107
  5. ROXITHROMYCIN [Concomitant]
     Active Substance: ROXITHROMYCIN
     Indication: Folliculitis
     Route: 048
     Dates: start: 20221121, end: 20221204
  6. PREDNISOLONE [Concomitant]
     Active Substance: PREDNISOLONE
     Indication: Pruritus
     Route: 048
     Dates: start: 20221121
  7. DESOWEN [Concomitant]
     Active Substance: DESONIDE
     Indication: Folliculitis
     Route: 061
     Dates: start: 20221121
  8. PENIRAMIN [Concomitant]
     Indication: Pruritus
     Route: 030
     Dates: start: 20221121, end: 20221121
  9. DEXAMETHASONE SODIUM PHOSPHATE [Concomitant]
     Active Substance: DEXAMETHASONE SODIUM PHOSPHATE
  10. UREA [Concomitant]
     Active Substance: UREA
     Indication: Palmar-plantar erythrodysaesthesia syndrome
     Dosage: 200MG/50G
     Route: 061
     Dates: start: 20220418
  11. ZOVIRAX [Concomitant]
     Active Substance: ACYCLOVIR
     Route: 048
  12. VASELINE PURE [Concomitant]
     Active Substance: PETROLATUM

REACTIONS (1)
  - Keratitis [Recovered/Resolved]

NARRATIVE: CASE EVENT DATE: 20221205
